FAERS Safety Report 8486434-7 (Version None)
Quarter: 2012Q3

REPORT INFORMATION
  Report Type: 
  Country: None (occurrence: None)
  Receive Date: 20120703
  Receipt Date: 20120703
  Transmission Date: 20120928
  Serious: Yes (Other)
  Sender: FDA-Public Use
  Company Number: US-MDL-2012ML000064

PATIENT
  Age: 25 Year

DRUGS (11)
  1. HYDROCODONE BITARTRATE [Suspect]
  2. OPIUM ALKALOIDS TOTAL [Suspect]
     Indication: SUBSTANCE USE
  3. TRAMADOL HCL [Suspect]
     Indication: SUBSTANCE USE
  4. BUPRENORPHINE [Suspect]
     Indication: SUBSTANCE USE
  5. OXYCODONE HCL [Suspect]
     Indication: SUBSTANCE USE
  6. OXYMORPHONE [Suspect]
     Indication: SUBSTANCE USE
  7. HEROIN [Suspect]
     Indication: SUBSTANCE USE
  8. FENTANYL-100 [Suspect]
     Indication: SUBSTANCE USE
  9. CODEINE SULFATE [Suspect]
     Indication: SUBSTANCE USE
  10. HYDROCODONE BITARTRATE [Suspect]
     Indication: SUBSTANCE USE
  11. HYDROMORPHONE HCL [Suspect]
     Indication: SUBSTANCE USE

REACTIONS (5)
  - DEPRESSION [None]
  - SUICIDAL BEHAVIOUR [None]
  - DRUG ABUSER [None]
  - DRUG DEPENDENCE [None]
  - DRUG WITHDRAWAL SYNDROME [None]
